FAERS Safety Report 8257182-3 (Version None)
Quarter: 2012Q2

REPORT INFORMATION
  Report Type: 
  Country: None (occurrence: None)
  Receive Date: 20120403
  Receipt Date: 20120327
  Transmission Date: 20120825
  Serious: Yes (Hospitalization)
  Sender: FDA-Public Use
  Company Number: PHHY2011JP105394

PATIENT
  Sex: Female
  Weight: 53 kg

DRUGS (9)
  1. MOTILIUM [Concomitant]
     Indication: GASTROENTERITIS
     Dosage: 20 MG, UNK
     Route: 048
     Dates: start: 20110822, end: 20110823
  2. GANATON [Concomitant]
     Indication: GASTROENTERITIS
     Dosage: 150 MG, UNK
     Route: 048
     Dates: start: 20110820, end: 20110821
  3. ACETAMINOPHEN [Concomitant]
     Indication: UPPER RESPIRATORY TRACT INFLAMMATION
     Dosage: 600 MG, UNK
     Route: 048
     Dates: start: 20110822, end: 20110822
  4. VOLTAREN [Suspect]
     Indication: UPPER RESPIRATORY TRACT INFLAMMATION
     Dosage: 25 MG, TID
     Route: 048
     Dates: start: 20110820, end: 20110820
  5. FLOMOX [Concomitant]
     Indication: UPPER RESPIRATORY TRACT INFLAMMATION
     Dosage: 300 MG, UNK
     Route: 048
     Dates: start: 20110820, end: 20110821
  6. CLARITHROMYCIN [Concomitant]
     Indication: UPPER RESPIRATORY TRACT INFLAMMATION
     Dosage: 400 MG, UNK
     Route: 048
     Dates: start: 20110822, end: 20110823
  7. LOXONIN [Suspect]
     Indication: UPPER RESPIRATORY TRACT INFECTION
     Dosage: 180 MG, (AT A DOSE OF 60 MG THREE TIMES DAILY)
     Route: 048
     Dates: start: 20110819, end: 20110819
  8. MEDICON (DEXTROMETHORPHAN HYDROBROMIDE) [Concomitant]
     Indication: UPPER RESPIRATORY TRACT INFLAMMATION
     Dosage: 30 MG, UNK
     Route: 048
     Dates: start: 20110822, end: 20110823
  9. PREDNISOLONE [Concomitant]
     Indication: PYREXIA
     Dosage: 20 MG, UNK
     Route: 048
     Dates: start: 20110822, end: 20110823

REACTIONS (18)
  - BILIRUBIN CONJUGATED INCREASED [None]
  - NAUSEA [None]
  - JAUNDICE [None]
  - ASPARTATE AMINOTRANSFERASE INCREASED [None]
  - ALANINE AMINOTRANSFERASE INCREASED [None]
  - GAMMA-GLUTAMYLTRANSFERASE INCREASED [None]
  - PRURITUS [None]
  - VANISHING BILE DUCT SYNDROME [None]
  - LYMPHOCYTE STIMULATION TEST POSITIVE [None]
  - BLOOD BILIRUBIN INCREASED [None]
  - BLOOD LACTATE DEHYDROGENASE INCREASED [None]
  - RED BLOOD CELL COUNT INCREASED [None]
  - BLOOD ALKALINE PHOSPHATASE INCREASED [None]
  - WHITE BLOOD CELL COUNT INCREASED [None]
  - BLOOD CHOLINESTERASE DECREASED [None]
  - HEPATIC FUNCTION ABNORMAL [None]
  - PYREXIA [None]
  - MALAISE [None]
